FAERS Safety Report 5708051-1 (Version None)
Quarter: 2008Q2

REPORT INFORMATION
  Report Type: 
  Country: None (occurrence: None)
  Receive Date: 20080417
  Receipt Date: 20080404
  Transmission Date: 20081010
  Serious: Yes (Life-Threatening, Hospitalization)
  Sender: FDA-Public Use
  Company Number: FR-AMGEN-US234515

PATIENT
  Sex: Female
  Weight: 52 kg

DRUGS (9)
  1. ENBREL [Suspect]
     Indication: RHEUMATOID ARTHRITIS
     Dosage: 25 MG; FREQUENCY UNSPECIFIED
     Route: 058
     Dates: start: 20000601
  2. CORTANCYL [Suspect]
     Indication: RHEUMATOID ARTHRITIS
     Dosage: 7 MG; FREQUENCY UNSPECIFIED
     Route: 048
  3. METHOTREXATE [Suspect]
     Indication: RHEUMATOID ARTHRITIS
     Dosage: 10 MG TOTAL WEEKLY
     Route: 048
     Dates: end: 20070101
  4. METHOTREXATE [Suspect]
     Dosage: UNKNOWN
     Route: 048
  5. VITAMIN D3 [Concomitant]
     Indication: PROPHYLAXIS
     Dosage: UNKNOWN
     Route: 048
  6. ALDACTONE [Concomitant]
     Indication: HYPERTENSION
     Dosage: 25 MG; FREQUENCY UNSPECIFIED
     Route: 048
  7. VASTAREL [Concomitant]
     Indication: HYPERTENSION
     Dosage: UNKNOWN; FREQUENCY UNSPECIFIED
     Route: 048
  8. OROCAL [Concomitant]
     Indication: PROPHYLAXIS
     Dosage: UNKNOWN
     Route: 048
  9. IRBESARTAN [Concomitant]
     Indication: HYPERTENSION
     Dosage: 300 MG; FREQUENCY UNSPECIFIED
     Route: 048

REACTIONS (4)
  - GASTROINTESTINAL NECROSIS [None]
  - LARGE INTESTINE PERFORATION [None]
  - NECROSIS ISCHAEMIC [None]
  - PERITONITIS [None]
